FAERS Safety Report 19165158 (Version 1)
Quarter: 2021Q2

REPORT INFORMATION
  Report Type: Spontaneous
  Country: US (occurrence: US)
  Receive Date: 20210421
  Receipt Date: 20210421
  Transmission Date: 20210717
  Serious: Yes (Other)
  Sender: FDA-Public Use
  Company Number: US-PFIZER INC-2021399945

PATIENT

DRUGS (1)
  1. ZOLOFT [Suspect]
     Active Substance: SERTRALINE HYDROCHLORIDE
     Dosage: 50 MG
     Route: 048

REACTIONS (5)
  - Insomnia [Unknown]
  - Dyspnoea [Unknown]
  - Agitation [Unknown]
  - Withdrawal syndrome [Unknown]
  - Drug dependence [Unknown]
